FAERS Safety Report 8061523-X (Version None)
Quarter: 2012Q1

REPORT INFORMATION
  Report Type: 
  Country: None (occurrence: None)
  Receive Date: 20120120
  Receipt Date: 20111228
  Transmission Date: 20120608
  Serious: No
  Sender: FDA-Public Use
  Company Number: US-ALLERGAN-1116928US

PATIENT
  Age: 24 Year
  Sex: Female

DRUGS (2)
  1. NEOCON [Concomitant]
     Indication: ORAL CONTRACEPTION
  2. RESTASIS [Suspect]
     Indication: DRY EYE
     Dosage: 1 GTT, UNKNOWN
     Route: 047
     Dates: start: 20100810, end: 20111123

REACTIONS (1)
  - MADAROSIS [None]
